FAERS Safety Report 22330019 (Version 1)
Quarter: 2023Q2

REPORT INFORMATION
  Report Type: Spontaneous
  Country: US (occurrence: None)
  Receive Date: 20230517
  Receipt Date: 20230517
  Transmission Date: 20230721
  Serious: No
  Sender: FDA-Public Use
  Company Number: US-ROCHE-3206880

PATIENT
  Sex: Male

DRUGS (2)
  1. ACTEMRA [Suspect]
     Active Substance: TOCILIZUMAB
     Indication: Still^s disease
     Dosage: 400 MG/20 ML
     Route: 042
     Dates: start: 20220930
  2. ACTEMRA [Suspect]
     Active Substance: TOCILIZUMAB
     Dosage: 80/MG/4ML
     Route: 042
     Dates: start: 20220930

REACTIONS (1)
  - Pain [Unknown]
